FAERS Safety Report 11458071 (Version 3)
Quarter: 2015Q4

REPORT INFORMATION
  Report Type: Spontaneous
  Country: CO (occurrence: CO)
  Receive Date: 20150904
  Receipt Date: 20151027
  Transmission Date: 20160304
  Serious: Yes (Death, Hospitalization, Other)
  Sender: FDA-Public Use
  Company Number: CO-JNJFOC-20150822270

PATIENT
  Age: 57 Year
  Sex: Male
  Weight: 52 kg

DRUGS (2)
  1. PREDNISOLONE. [Concomitant]
     Active Substance: PREDNISOLONE
     Indication: PROSTATE CANCER
     Route: 048
     Dates: start: 20150503
  2. ZYTIGA [Suspect]
     Active Substance: ABIRATERONE ACETATE
     Indication: PROSTATE CANCER
     Route: 048
     Dates: start: 20150503

REACTIONS (5)
  - Condition aggravated [Unknown]
  - Back pain [Recovered/Resolved]
  - Nephropathy [Recovered/Resolved]
  - Death [Fatal]
  - Inflammation [Recovered/Resolved]

NARRATIVE: CASE EVENT DATE: 20150816
